FAERS Safety Report 23542418 (Version 1)
Quarter: 2024Q1

REPORT INFORMATION
  Report Type: Spontaneous
  Country: GB (occurrence: GB)
  Receive Date: 20240220
  Receipt Date: 20240220
  Transmission Date: 20240410
  Serious: Yes (Other)
  Sender: FDA-Public Use
  Company Number: GB-OPELLA-2024OHG004757

PATIENT
  Sex: Female

DRUGS (2)
  1. DULCOLAX (BISACODYL) [Suspect]
     Active Substance: BISACODYL
     Indication: Product used for unknown indication
  2. SENNA TABS [Suspect]
     Active Substance: SENNOSIDES A AND B
     Indication: Product used for unknown indication

REACTIONS (2)
  - Chronic kidney disease [Unknown]
  - Product administration error [Unknown]
